FAERS Safety Report 4840093-0 (Version None)
Quarter: 2005Q4

REPORT INFORMATION
  Report Type: 
  Country: None (occurrence: None)
  Receive Date: 20051125
  Receipt Date: 20051116
  Transmission Date: 20060501
  Serious: Yes (Other)
  Sender: FDA-Public Use
  Company Number: S05-USA-03682-01

PATIENT
  Age: 57 Year
  Sex: Female
  Weight: 72.1219 kg

DRUGS (8)
  1. LEXAPRO [Suspect]
     Indication: DEPRESSION
     Dosage: 10 MG QD PO
     Route: 048
     Dates: start: 20030701
  2. PROCRIT [Suspect]
     Indication: ANAEMIA
     Dosage: 30000 UNITS QMON
  3. COUMADIN [Concomitant]
  4. IVIG (IMMUNOGLOBULIN) [Concomitant]
  5. TARKA [Concomitant]
  6. COREG [Concomitant]
  7. BOVINA (IBANDRONATE) [Concomitant]
  8. IRON (IRON) [Concomitant]

REACTIONS (3)
  - PORPHYRIA [None]
  - RASH [None]
  - SKIN ULCER [None]
